FAERS Safety Report 6415833-X (Version None)
Quarter: 2009Q4

REPORT INFORMATION
  Report Type: 
  Country: None (occurrence: None)
  Receive Date: 20091023
  Receipt Date: 20091008
  Transmission Date: 20100525
  Serious: Yes (Hospitalization)
  Sender: FDA-Public Use
  Company Number: ISPH-2009-0030

PATIENT
  Age: 32 Year
  Sex: Female
  Weight: 51.2 kg

DRUGS (2)
  1. AZASITE [Suspect]
     Indication: CONJUNCTIVITIS INFECTIVE
     Dosage: 1 GTT, BID, OPHTHALMIC
     Route: 047
     Dates: start: 20090128, end: 20090129
  2. PRENTAL VITAMINS (ASCORBIC ACID, CALCIUM PANTOTHENATE, CYANOCOBALAMIN, [Concomitant]

REACTIONS (4)
  - DRUG EXPOSURE DURING PREGNANCY [None]
  - PRE-ECLAMPSIA [None]
  - PREGNANCY [None]
  - VISION BLURRED [None]
